FAERS Safety Report 9265503 (Version 1)
Quarter: 2013Q2

REPORT INFORMATION
  Report Type: Spontaneous
  Country: US (occurrence: US)
  Receive Date: 20130501
  Receipt Date: 20130501
  Transmission Date: 20140414
  Serious: No
  Sender: FDA-Public Use
  Company Number: US-PFIZER INC-2013132363

PATIENT
  Age: 58 Year
  Sex: Male
  Weight: 113.38 kg

DRUGS (5)
  1. ZOLOFT [Suspect]
     Indication: DEPRESSION
     Dosage: 50 MG, 1X/DAY
     Route: 048
     Dates: start: 2006
  2. DIOVAN [Concomitant]
     Indication: HYPERTENSION
     Dosage: 40 MG, 1X/DAY
  3. LOPRESSOR [Concomitant]
     Indication: ANGINA PECTORIS
     Dosage: 25 MG, 2X/DAY
  4. LOPRESSOR [Concomitant]
     Indication: HYPERTENSION
  5. PAXIL [Concomitant]
     Dosage: UNK

REACTIONS (1)
  - Libido decreased [Unknown]
